FAERS Safety Report 18287566 (Version 1)
Quarter: 2020Q3

REPORT INFORMATION
  Report Type: Report from Study
  Country: IT (occurrence: IT)
  Receive Date: 20200921
  Receipt Date: 20200921
  Transmission Date: 20201103
  Serious: Yes (Hospitalization, Other)
  Sender: FDA-Public Use
  Company Number: PHHO2019IT005623

PATIENT
  Age: 44 Year
  Sex: Female
  Weight: 80 kg

DRUGS (7)
  1. LAG525 [Suspect]
     Active Substance: IERAMILIMAB
     Indication: TRIPLE NEGATIVE BREAST CANCER
     Dosage: 600 MG, Q3W
     Route: 042
     Dates: start: 20190508, end: 20190508
  2. IBUPROFEN. [Concomitant]
     Active Substance: IBUPROFEN
     Indication: PYREXIA
     Dosage: UNK
     Route: 065
     Dates: start: 20190518, end: 20190518
  3. BETAMETHASONE. [Concomitant]
     Active Substance: BETAMETHASONE
     Indication: PYREXIA
     Dosage: UNK
     Route: 065
     Dates: start: 20190518, end: 20190518
  4. RANITIDINE. [Concomitant]
     Active Substance: RANITIDINE
     Indication: PROPHYLAXIS
     Dosage: UNK
     Route: 065
     Dates: start: 20190518, end: 20190518
  5. ACETAMINOPHEN. [Concomitant]
     Active Substance: ACETAMINOPHEN
     Indication: PYREXIA
     Dosage: UNK
     Route: 065
     Dates: start: 20190516, end: 20190517
  6. INC280 [Suspect]
     Active Substance: CAPMATINIB
     Indication: TRIPLE NEGATIVE BREAST CANCER
     Dosage: 4 G, Q12H
     Route: 048
     Dates: start: 20190508, end: 20190517
  7. PDR001 [Suspect]
     Active Substance: SPARTALIZUMAB
     Indication: TRIPLE NEGATIVE BREAST CANCER
     Dosage: 400 MG, Q3W
     Route: 042
     Dates: start: 20190508, end: 20190508

REACTIONS (1)
  - Rash [Recovered/Resolved]

NARRATIVE: CASE EVENT DATE: 20190518
